FAERS Safety Report 5545393-7 (Version None)
Quarter: 2007Q4

REPORT INFORMATION
  Report Type: 
  Country: None (occurrence: None)
  Receive Date: 20071211
  Receipt Date: 20071130
  Transmission Date: 20080405
  Serious: Yes (Other)
  Sender: FDA-Public Use
  Company Number: US-TYCO HEALTHCARE/MALLINCKRODT-T200701479

PATIENT

DRUGS (1)
  1. OXYCODONE HCL [Suspect]
     Dosage: 5-10 MG, Q4-6 HOURS

REACTIONS (6)
  - DENTAL CARIES [None]
  - DETOXIFICATION [None]
  - MENTAL DISORDER [None]
  - PURULENT DISCHARGE [None]
  - SUICIDAL IDEATION [None]
  - VOMITING [None]
